FAERS Safety Report 14292574 (Version 1)
Quarter: 2017Q4

REPORT INFORMATION
  Report Type: Spontaneous
  Country: IS (occurrence: IS)
  Receive Date: 20171215
  Receipt Date: 20171215
  Transmission Date: 20180321
  Serious: Yes (Hospitalization)
  Sender: FDA-Public Use
  Company Number: IS-PFIZER INC-2017530043

PATIENT
  Age: 64 Year
  Sex: Female

DRUGS (5)
  1. BETOLVEX [Concomitant]
     Active Substance: CYANOCOBALAMIN
     Dosage: 1 MG, UNK
  2. PARATABS [Concomitant]
     Dosage: 1000 MG, EVERY 8 HOURS
  3. CELEBRA [Suspect]
     Active Substance: CELECOXIB
     Indication: ANALGESIC THERAPY
     Dosage: 200 MG, 2X/DAY
     Dates: start: 20171023, end: 20171024
  4. OMEPRAZOL ACTAVIS [Concomitant]
     Active Substance: OMEPRAZOLE
     Dosage: 20 MG, 1X/DAY
  5. DALACIN [Concomitant]
     Active Substance: CLINDAMYCIN
     Dosage: 300MG EVERY 8 HOURS

REACTIONS (3)
  - Erythema [Recovered/Resolved]
  - Facial pain [Recovered/Resolved]
  - Skin burning sensation [Recovered/Resolved]

NARRATIVE: CASE EVENT DATE: 20171024
